FAERS Safety Report 9336615 (Version 3)
Quarter: 2013Q3

REPORT INFORMATION
  Report Type: Spontaneous
  Country: JP (occurrence: JP)
  Receive Date: 20130607
  Receipt Date: 20130702
  Transmission Date: 20140515
  Serious: Yes (Other)
  Sender: FDA-Public Use
  Company Number: JP-OTSUKA-JP-2013-12065

PATIENT
  Age: 93 Year
  Sex: Female

DRUGS (6)
  1. SAMSCA [Suspect]
     Indication: CARDIAC FAILURE
     Dosage: 15 MG MILLIGRAM(S), QD
     Route: 048
     Dates: start: 20130510, end: 20130510
  2. SAMSCA [Suspect]
     Dosage: 7.5 MG MILLIGRAM(S), QD
     Route: 048
     Dates: start: 20130513, end: 20130515
  3. LASIX [Concomitant]
     Indication: CARDIAC FAILURE
     Dosage: 20 MG MILLIGRAM(S), QD
     Route: 048
     Dates: start: 20130508, end: 20130526
  4. HALFDIGOXIN [Concomitant]
     Indication: ATRIAL FIBRILLATION
     Dosage: 0.125 MG MILLIGRAM(S), QD
     Route: 048
     Dates: start: 20130508, end: 20130526
  5. SOLDEM 3A [Concomitant]
     Indication: NUTRITIONAL SUPPLEMENTATION
     Dosage: 500 ML MILLILITRE(S), BID
     Route: 041
     Dates: end: 20130515
  6. SOLDEM 3A [Concomitant]
     Dosage: 500 ML MILLILITRE(S), QID
     Route: 041
     Dates: start: 20130516, end: 20130520

REACTIONS (1)
  - Hypernatraemia [Recovering/Resolving]
